FAERS Safety Report 19507344 (Version 1)
Quarter: 2021Q3

REPORT INFORMATION
  Report Type: Spontaneous
  Country: DE (occurrence: DE)
  Receive Date: 20210708
  Receipt Date: 20210708
  Transmission Date: 20211014
  Serious: Yes (Hospitalization, Other)
  Sender: FDA-Public Use
  Company Number: DE-TEVA-2021-DE-1929722

PATIENT
  Age: 72 Year
  Sex: Female

DRUGS (12)
  1. RAMIPRIL. [Concomitant]
     Active Substance: RAMIPRIL
     Dosage: 5 MILLIGRAM DAILY;  1?0?0?0,
     Route: 048
  2. PREDNISON [Suspect]
     Active Substance: PREDNISONE
     Dosage: 5 MILLIGRAM DAILY;  1?0?0?0,
     Route: 048
  3. OMEPRAZOL [Concomitant]
     Active Substance: OMEPRAZOLE
     Dosage: 40 MILLIGRAM DAILY;  1?0?0?0,
     Route: 048
  4. LEVOTHYROXIN?NATRIUM [Concomitant]
     Active Substance: LEVOTHYROXINE SODIUM
     Dosage: 100 MICROGRAM DAILY;   1?0?0?0,
     Route: 048
  5. CANDESARTAN. [Concomitant]
     Active Substance: CANDESARTAN
     Dosage: 16 MILLIGRAM DAILY;  1?0?0?0,
     Route: 048
  6. MIRTAZAPIN ABZ 15MG [Concomitant]
     Active Substance: MIRTAZAPINE
     Dosage: 15 MILLIGRAM DAILY;   0?0?0?1,
     Route: 048
  7. CALCIUM VITAMIN D3 ACIS 500MG/400I.E. [Concomitant]
     Dosage: 1 DF ,WEEK ONE,
     Route: 048
  8. BETAHISTIN [Concomitant]
     Active Substance: BETAHISTINE
     Dosage: 24 MILLIGRAM DAILY;   0?1?0?0,
     Route: 048
  9. CANDECOR COMP. 32MG/25MG [Suspect]
     Active Substance: CANDESARTAN CILEXETIL\HYDROCHLOROTHIAZIDE
     Dosage: 1 DOSAGE FORMS DAILY; 32|25 MG, 1?0?0?0,
     Route: 048
  10. VITAMIN B12 AAA 1000MIKROGRAMM [Concomitant]
     Dosage: 1 DOSAGE FORMS DAILY;
     Route: 048
  11. XARELTO [Suspect]
     Active Substance: RIVAROXABAN
     Dosage: 15 MILLIGRAM DAILY;  1?0?0?0,
     Route: 048
  12. ANAMIRTA COCCULUS D3/CONIUM MACULATUM D2/AMBRA GRISEA D5/PETROLEUM REC [Concomitant]
     Dosage: 4 DOSAGE FORMS DAILY; 1?1?1?1,
     Route: 048

REACTIONS (3)
  - Syncope [Unknown]
  - Vertigo positional [Unknown]
  - Asthenia [Unknown]
